FAERS Safety Report 17104117 (Version 1)
Quarter: 2019Q4

REPORT INFORMATION
  Report Type: Spontaneous
  Country: BR (occurrence: BR)
  Receive Date: 20191203
  Receipt Date: 20191203
  Transmission Date: 20200122
  Serious: Yes (Other)
  Sender: FDA-Public Use
  Company Number: BR-GLAXOSMITHKLINE-BR2019AMR215830

PATIENT
  Age: 8 Year
  Sex: Male

DRUGS (1)
  1. AEROLIN [Suspect]
     Active Substance: ALBUTEROL
     Indication: ASTHMA
     Dosage: UNK

REACTIONS (3)
  - Wheezing [Unknown]
  - Increased bronchial secretion [Unknown]
  - Asthmatic crisis [Recovered/Resolved]
